FAERS Safety Report 19626176 (Version 3)
Quarter: 2022Q1

REPORT INFORMATION
  Report Type: Spontaneous
  Country: GR (occurrence: GR)
  Receive Date: 20210729
  Receipt Date: 20220314
  Transmission Date: 20220424
  Serious: Yes (Life-Threatening, Other)
  Sender: FDA-Public Use
  Company Number: GR-PFIZER INC-202100916576

PATIENT
  Age: 52 Year
  Sex: Female

DRUGS (1)
  1. AZITHROMYCIN [Suspect]
     Active Substance: AZITHROMYCIN
     Indication: COVID-19
     Dosage: 500 MG
     Route: 042

REACTIONS (4)
  - Kounis syndrome [Recovering/Resolving]
  - Acute coronary syndrome [Recovering/Resolving]
  - Cardio-respiratory arrest [Recovering/Resolving]
  - Off label use [Unknown]
